FAERS Safety Report 6611150-3 (Version None)
Quarter: 2010Q1

REPORT INFORMATION
  Report Type: 
  Country: None (occurrence: None)
  Receive Date: 20100302
  Receipt Date: 20100302
  Transmission Date: 20100710
  Serious: Yes (Hospitalization)
  Sender: FDA-Public Use
  Company Number: None

PATIENT
  Age: 86 Year
  Sex: Female
  Weight: 45 kg

DRUGS (9)
  1. ASPIRIN [Suspect]
     Indication: CORONARY ARTERY DISEASE
     Dosage: 81MG DAILY PO CHRONIC
     Route: 048
  2. PLAVIX [Suspect]
     Indication: CORONARY ARTERY DISEASE
     Dosage: 75MG DAILY PO CHRONIC
     Route: 048
  3. TRAMADOL HCL [Concomitant]
  4. SIMVASTATIN [Concomitant]
  5. GLIMEPIRIDE [Concomitant]
  6. METOPROLOL [Concomitant]
  7. OMEPRAZOLE [Concomitant]
  8. VIT D [Concomitant]
  9. M.V.I. [Concomitant]

REACTIONS (3)
  - DIVERTICULUM INTESTINAL HAEMORRHAGIC [None]
  - HYPOGLYCAEMIA [None]
  - HYPOTENSION [None]
